FAERS Safety Report 9841752 (Version 1)
Quarter: 2013Q4

REPORT INFORMATION
  Report Type: Spontaneous
  Country: US (occurrence: None)
  Receive Date: 20131219
  Receipt Date: 20131219
  Transmission Date: 20140711
  Serious: Yes (Death)
  Sender: FDA-Public Use
  Company Number: 163-20785-12111141

PATIENT
  Age: 86 Year
  Sex: Male

DRUGS (5)
  1. THALOMID (THALIDOMIDE) (50 MILLIGRAM, CAPSULES) [Suspect]
     Indication: TYPE 2 LEPRA REACTION
     Dosage: 1 IN 1 D
     Route: 048
     Dates: start: 20120621, end: 20121023
  2. DAPSONE [Concomitant]
  3. CLOFAZIMINE [Concomitant]
  4. RIFAMPIN [Concomitant]
  5. CLARITHROMYCIN [Concomitant]

REACTIONS (2)
  - Myocardial infarction [None]
  - Arrhythmia [None]
